FAERS Safety Report 24331528 (Version 1)
Quarter: 2024Q3

REPORT INFORMATION
  Report Type: Report from Study
  Country: US (occurrence: US)
  Receive Date: 20240918
  Receipt Date: 20240918
  Transmission Date: 20241016
  Serious: No
  Sender: BIOVITRUM
  Company Number: US-BIOVITRUM-2024-US-010392

PATIENT
  Age: 55 Year
  Sex: Female

DRUGS (1)
  1. DOPTELET [Suspect]
     Active Substance: AVATROMBOPAG MALEATE
     Indication: Immune thrombocytopenia
     Dosage: 0.5 MG DAILY (1/2 DAILY)
     Route: 048
     Dates: start: 201910

REACTIONS (2)
  - Peripheral swelling [Unknown]
  - Arthralgia [Not Recovered/Not Resolved]
